FAERS Safety Report 6257597-9 (Version None)
Quarter: 2009Q3

REPORT INFORMATION
  Report Type: 
  Country: None (occurrence: None)
  Receive Date: 20090706
  Receipt Date: 20090622
  Transmission Date: 20100115
  Serious: Yes (Other)
  Sender: FDA-Public Use
  Company Number: ES-ROCHE-640941

PATIENT
  Age: 48 Year
  Sex: Male

DRUGS (5)
  1. PEG-INTERFERON ALFA 2A (RO 25-8310) [Suspect]
     Route: 065
  2. RIBAVIRIN [Suspect]
     Route: 065
  3. LAMIVUDINE [Concomitant]
     Indication: HIV INFECTION
  4. TENOFOVIR [Concomitant]
     Indication: HIV INFECTION
  5. LOPINAVIR AND RITONAVIR [Concomitant]
     Indication: HIV INFECTION

REACTIONS (8)
  - ASTHENIA [None]
  - DIARRHOEA [None]
  - FATIGUE [None]
  - HEADACHE [None]
  - MYALGIA [None]
  - NAUSEA [None]
  - PYREXIA [None]
  - TUBERCULOSIS [None]
